FAERS Safety Report 8176971-7 (Version None)
Quarter: 2012Q1

REPORT INFORMATION
  Report Type: 
  Country: None (occurrence: None)
  Receive Date: 20120301
  Receipt Date: 20120223
  Transmission Date: 20120608
  Serious: Yes (Other)
  Sender: FDA-Public Use
  Company Number: JP-PFIZER INC-2012033730

PATIENT
  Age: 82 Year
  Sex: Female

DRUGS (2)
  1. AZULFIDINE [Suspect]
     Dosage: UNK
     Route: 048
  2. ALLOPURINOL [Suspect]

REACTIONS (2)
  - KERATITIS [None]
  - STEVENS-JOHNSON SYNDROME [None]
